FAERS Safety Report 9822817 (Version 1)
Quarter: 2014Q1

REPORT INFORMATION
  Report Type: Spontaneous
  Country: US (occurrence: US)
  Receive Date: 20140116
  Receipt Date: 20140116
  Transmission Date: 20141002
  Serious: No
  Sender: FDA-Public Use
  Company Number: US-009507513-1401USA005389

PATIENT
  Age: 65 Year
  Sex: Male

DRUGS (2)
  1. PEGINTRON [Suspect]
     Indication: HEPATITIS C
     Dosage: REDIPEN 72 MICROGRAM, QW
     Dates: start: 20140110
  2. REBETOL [Suspect]
     Route: 048

REACTIONS (3)
  - Adverse drug reaction [Recovered/Resolved]
  - Underdose [Unknown]
  - Off label use [Unknown]
